FAERS Safety Report 9363868 (Version 1)
Quarter: 2013Q2

REPORT INFORMATION
  Report Type: Spontaneous
  Country: FR (occurrence: None)
  Receive Date: 20130618
  Receipt Date: 20130618
  Transmission Date: 20140414
  Serious: Yes (Life-Threatening, Hospitalization, Other)
  Sender: FDA-Public Use
  Company Number: MC201300276

PATIENT
  Age: 81 Year
  Sex: Female
  Weight: 80 kg

DRUGS (5)
  1. ANGIOMAX, ANGIOX (BIVALIRUDIN) INJECTION [Suspect]
     Indication: CORONARY ANGIOPLASTY
     Dosage: 0.75 MG/KG, (12 ML) BOLUS, INTRAVENOUS
     Dates: start: 20130425, end: 20130425
  2. ASPIRIN (ACETYLSALICYLIC ACID) [Suspect]
     Dosage: 75 MG, PRE-PCI, QD
     Dates: start: 201304, end: 201304
  3. CLOPIDOGREL [Suspect]
     Dosage: 75 MG, PRE-PCI, QD
     Dates: start: 201304, end: 201304
  4. LOVENOX (ENOXAPARIN SODIUM) [Suspect]
     Indication: VEIN DISORDER
     Dosage: 0.7 ML, X 2/D
     Dates: start: 201304, end: 20130425
  5. LOVENOX (ENOXAPARIN SODIUM) [Suspect]
     Indication: PROPHYLAXIS
     Dosage: 0.7 ML, X 2/D
     Dates: start: 201304, end: 20130425

REACTIONS (5)
  - Shock haemorrhagic [None]
  - Vascular pseudoaneurysm [None]
  - Dyspnoea [None]
  - Catheter site haematoma [None]
  - Wound [None]
